FAERS Safety Report 12307983 (Version 1)
Quarter: 2016Q2

REPORT INFORMATION
  Report Type: Spontaneous
  Country: US (occurrence: US)
  Receive Date: 20160426
  Receipt Date: 20160426
  Transmission Date: 20160815
  Serious: No
  Sender: FDA-Public Use
  Company Number: US-ALKERMES INC.-ALK-2016-000255

PATIENT

DRUGS (7)
  1. NORVIR [Concomitant]
     Active Substance: RITONAVIR
     Indication: HIV INFECTION
     Dosage: 100 MG, QD
     Route: 048
     Dates: start: 2006
  2. VIREAD [Concomitant]
     Active Substance: TENOFOVIR DISOPROXIL FUMARATE
     Indication: HIV INFECTION
     Dosage: 300 MG, QD
     Route: 048
     Dates: start: 2006
  3. PREZISTA [Concomitant]
     Active Substance: DARUNAVIR ETHANOLATE
     Indication: ACQUIRED IMMUNODEFICIENCY SYNDROME
  4. VIVITROL [Suspect]
     Active Substance: NALTREXONE
     Indication: DRUG DEPENDENCE
     Dosage: 380 MG, Q4WK
     Route: 030
     Dates: start: 201509
  5. VIREAD [Concomitant]
     Active Substance: TENOFOVIR DISOPROXIL FUMARATE
     Indication: ACQUIRED IMMUNODEFICIENCY SYNDROME
  6. PREZISTA [Concomitant]
     Active Substance: DARUNAVIR ETHANOLATE
     Indication: HIV INFECTION
     Dosage: 800 MG, QD
     Route: 048
     Dates: start: 2006
  7. NORVIR [Concomitant]
     Active Substance: RITONAVIR
     Indication: ACQUIRED IMMUNODEFICIENCY SYNDROME

REACTIONS (18)
  - Injection site inflammation [Unknown]
  - Headache [Recovered/Resolved]
  - Agitation [Unknown]
  - Product reconstitution issue [Recovered/Resolved]
  - Depression [Unknown]
  - Arthralgia [Unknown]
  - Drug withdrawal syndrome [Unknown]
  - Hot flush [Unknown]
  - Product colour issue [Recovered/Resolved]
  - Injection site nodule [Unknown]
  - Injection site reaction [Unknown]
  - Back pain [Recovered/Resolved]
  - Anxiety [Recovered/Resolved]
  - Insomnia [Not Recovered/Not Resolved]
  - Fatigue [Not Recovered/Not Resolved]
  - Male sexual dysfunction [Unknown]
  - Restlessness [Unknown]
  - Nausea [Unknown]

NARRATIVE: CASE EVENT DATE: 201509
